FAERS Safety Report 25428901 (Version 1)
Quarter: 2025Q2

REPORT INFORMATION
  Report Type: Spontaneous
  Country: CN (occurrence: CN)
  Receive Date: 20250612
  Receipt Date: 20250612
  Transmission Date: 20250717
  Serious: Yes (Other)
  Sender: BAYER HEALTHCARE PHARMACEUTICALS INC.
  Company Number: CN-BAYER-2025A078035

PATIENT
  Age: 46 Year
  Sex: Female
  Weight: 49 kg

DRUGS (1)
  1. GADOBUTROL [Suspect]
     Active Substance: GADOBUTROL
     Indication: Magnetic resonance imaging abdominal
     Route: 040
     Dates: start: 20250416, end: 20250416

REACTIONS (3)
  - Hypoaesthesia [Recovering/Resolving]
  - Rash macular [Recovering/Resolving]
  - Erythema [None]

NARRATIVE: CASE EVENT DATE: 20250416
